FAERS Safety Report 14531415 (Version 1)
Quarter: 2018Q1

REPORT INFORMATION
  Report Type: Spontaneous
  Country: US (occurrence: US)
  Receive Date: 20180214
  Receipt Date: 20180214
  Transmission Date: 20180509
  Serious: Yes (Disabling, Other)
  Sender: FDA-Public Use
  Company Number: None

PATIENT
  Age: 63 Year
  Sex: Male
  Weight: 68.95 kg

DRUGS (4)
  1. GABAPENTIN. [Concomitant]
     Active Substance: GABAPENTIN
  2. GLATIRAMER ACETATE 40MG FOR SUBQUTANEOUS INJECTION [Suspect]
     Active Substance: GLATIRAMER ACETATE
     Indication: MULTIPLE SCLEROSIS
     Dosage: 12 PREFILLED SYRINGE  3 TIMES/WEEK SUBCUTANEOUS INJECTION
     Route: 058
     Dates: start: 20180115, end: 20180126
  3. MULTIVITAMIN [Concomitant]
     Active Substance: VITAMINS
  4. VITAMIN D3 [Concomitant]
     Active Substance: CHOLECALCIFEROL

REACTIONS (7)
  - Injection site reaction [None]
  - Fatigue [None]
  - Injection site pain [None]
  - Product substitution issue [None]
  - Heart rate irregular [None]
  - Arthralgia [None]
  - Musculoskeletal stiffness [None]

NARRATIVE: CASE EVENT DATE: 20180115
